FAERS Safety Report 5989255-X (Version None)
Quarter: 2008Q4

REPORT INFORMATION
  Report Type: 
  Country: None (occurrence: None)
  Receive Date: 20081205
  Receipt Date: 20081121
  Transmission Date: 20090506
  Serious: Yes (Life-Threatening)
  Sender: FDA-Public Use
  Company Number: 004568

PATIENT
  Age: 81 Year
  Sex: Male
  Weight: 46 kg

DRUGS (4)
  1. PLETAL [Suspect]
     Indication: CEREBRAL INFARCTION
     Dosage: 100 MG, BID, ORAL
     Route: 048
     Dates: start: 20080805, end: 20080905
  2. ADALAT L (NIFEDIPINE) TABLET, 10 MG [Concomitant]
  3. FAMOTIDINE [Concomitant]
  4. RENIVACE (ENALAPRIL MALEATE) TABLET, 5 MG [Concomitant]

REACTIONS (8)
  - ANEURYSM [None]
  - ATRIAL FIBRILLATION [None]
  - ATRIOVENTRICULAR BLOCK SECOND DEGREE [None]
  - CARDIAC FAILURE [None]
  - LYMPHADENOPATHY [None]
  - OEDEMA PERIPHERAL [None]
  - TACHYCARDIA [None]
  - VEIN DISORDER [None]
